FAERS Safety Report 4950071-9 (Version None)
Quarter: 2006Q1

REPORT INFORMATION
  Report Type: 
  Country: None (occurrence: None)
  Receive Date: 20060320
  Receipt Date: 20060320
  Transmission Date: 20060701
  Serious: Yes (Life-Threatening, Hospitalization)
  Sender: FDA-Public Use
  Company Number: None

PATIENT

DRUGS (8)
  1. FORTAMET [Suspect]
     Indication: DIABETES MELLITUS NON-INSULIN-DEPENDENT
     Dosage: 1 PO OD
     Route: 048
     Dates: start: 20060309, end: 20060312
  2. SYNTHROID [Concomitant]
  3. DIOVAN [Concomitant]
  4. ZOLOFT [Concomitant]
  5. AVANDIA [Concomitant]
  6. LIPITOR [Concomitant]
  7. REPAN [Concomitant]
  8. AMBIEN [Concomitant]

REACTIONS (5)
  - ARRHYTHMIA [None]
  - BLOOD MAGNESIUM DECREASED [None]
  - BLOOD PRESSURE FLUCTUATION [None]
  - HEART RATE ABNORMAL [None]
  - MYALGIA [None]
